FAERS Safety Report 9265385 (Version 1)
Quarter: 2013Q2

REPORT INFORMATION
  Report Type: Spontaneous
  Country: GB (occurrence: GB)
  Receive Date: 20130501
  Receipt Date: 20130501
  Transmission Date: 20140414
  Serious: Yes (Other)
  Sender: FDA-Public Use
  Company Number: PHHY2013GB041443

PATIENT
  Age: 20 Year
  Sex: Female

DRUGS (2)
  1. RISPERIDONE [Suspect]
  2. NITRAZEPAM ACTAVIS [Interacting]
     Indication: POOR QUALITY SLEEP
     Dosage: 5 MG, QD;, 01 NIGHTLY
     Dates: start: 201208

REACTIONS (7)
  - Intentional self-injury [Unknown]
  - Sleep disorder [Unknown]
  - Rebound effect [Unknown]
  - Feeling abnormal [Unknown]
  - Intentional drug misuse [Unknown]
  - Drug interaction [Unknown]
  - Drug ineffective [Unknown]
